FAERS Safety Report 5303494-2 (Version None)
Quarter: 2007Q2

REPORT INFORMATION
  Report Type: 
  Country: None (occurrence: None)
  Receive Date: 20070420
  Receipt Date: 20070413
  Transmission Date: 20071010
  Serious: Yes (Death)
  Sender: FDA-Public Use
  Company Number: FI-PFIZER INC-2007029753

PATIENT
  Sex: Female

DRUGS (3)
  1. ZOLOFT [Suspect]
     Route: 064
     Dates: end: 20061111
  2. ZYPREXA [Suspect]
     Route: 064
     Dates: end: 20061111
  3. OXAMIN [Suspect]
     Route: 064
     Dates: end: 20061111

REACTIONS (3)
  - DRUG EXPOSURE DURING PREGNANCY [None]
  - MUSCLE TWITCHING [None]
  - SUDDEN DEATH [None]
